FAERS Safety Report 9450522 (Version 4)
Quarter: 2014Q1

REPORT INFORMATION
  Report Type: Spontaneous
  Country: US (occurrence: US)
  Receive Date: 20130809
  Receipt Date: 20140102
  Transmission Date: 20141002
  Serious: Yes (Life-Threatening, Hospitalization)
  Sender: FDA-Public Use
  Company Number: US-ASTELLAS-2013US008422

PATIENT
  Age: 60 Year
  Sex: Female

DRUGS (14)
  1. LEXISCAN [Suspect]
     Indication: SCAN MYOCARDIAL PERFUSION
     Dosage: UNK
     Route: 042
     Dates: start: 20130729, end: 20130729
  2. CLONAZEPAM [Concomitant]
     Indication: PRODUCT USED FOR UNKNOWN INDICATION
     Dosage: 1 MG, BID
     Route: 048
  3. TRAZODONE HCL [Concomitant]
     Indication: PRODUCT USED FOR UNKNOWN INDICATION
     Dosage: 150 MG, UID/QD
     Route: 048
  4. GLUCOSAMINE [Concomitant]
     Indication: PRODUCT USED FOR UNKNOWN INDICATION
     Dosage: 3 DF, UID/QD
     Route: 048
  5. PROCHLORPERAZINE MALEATE [Concomitant]
     Indication: PRODUCT USED FOR UNKNOWN INDICATION
     Dosage: 10 MG, PRN
     Route: 048
  6. MIDODRINE HCL [Concomitant]
     Indication: PRODUCT USED FOR UNKNOWN INDICATION
     Dosage: 2.5 MG, Q8 HOURS
     Route: 048
  7. ACIDOPHILUS [Concomitant]
     Indication: PRODUCT USED FOR UNKNOWN INDICATION
     Dosage: 10 MG, BID
     Route: 048
  8. POTASSIUM CHLORIDE [Concomitant]
     Indication: PRODUCT USED FOR UNKNOWN INDICATION
     Dosage: 20 MEQ, UID/QD
     Route: 048
  9. LOPERAMIDE HCL [Concomitant]
     Indication: PRODUCT USED FOR UNKNOWN INDICATION
     Dosage: 2 MG, BID
     Route: 048
  10. PEPTO-BISMOL [Concomitant]
     Indication: PRODUCT USED FOR UNKNOWN INDICATION
     Dosage: UNK
     Route: 065
  11. CYMBALTA [Concomitant]
     Indication: PRODUCT USED FOR UNKNOWN INDICATION
     Dosage: 60 MG, UID/QD
     Route: 048
  12. GABAPENTIN [Concomitant]
     Indication: PRODUCT USED FOR UNKNOWN INDICATION
     Dosage: 600 MG, TID
     Route: 048
  13. LANSOPRAZOLE [Concomitant]
     Indication: PRODUCT USED FOR UNKNOWN INDICATION
     Dosage: 30 MG, BID
     Route: 048
  14. MECLIZINE HCL [Concomitant]
     Indication: PRODUCT USED FOR UNKNOWN INDICATION
     Dosage: 25 MG, Q8 HOURS
     Route: 048

REACTIONS (3)
  - Cerebral haemorrhage [Recovered/Resolved]
  - Convulsion [Not Recovered/Not Resolved]
  - Blood pressure increased [Recovered/Resolved]
